FAERS Safety Report 8927790 (Version 3)
Quarter: 2013Q1

REPORT INFORMATION
  Report Type: Spontaneous
  Country: US (occurrence: US)
  Receive Date: 20121127
  Receipt Date: 20130114
  Transmission Date: 20140127
  Serious: Yes (Death, Hospitalization)
  Sender: FDA-Public Use
  Company Number: US-COVIDIEN/TYCO HEALTHCARE/MALLINCKRODT-T201204148

PATIENT
  Age: 69 Year
  Sex: Male

DRUGS (6)
  1. FENTANYL CITRATE [Suspect]
     Indication: PAIN
     Dosage: 200 MCG PRN (MAX THREE DAILY)
     Route: 048
     Dates: start: 201206
  2. FENTANYL [Concomitant]
     Dosage: 50 UG/HR, EVERY 3 DAYS
     Route: 062
  3. METOPROLOL [Concomitant]
     Dosage: UNK DOSE, TWICE DAILY
  4. ASPIRIN [Concomitant]
     Dosage: 325 DAILY
  5. LASIX                              /00032601/ [Concomitant]
     Dosage: 40, TWICE DAILY
  6. VALIUM                             /00017001/ [Concomitant]
     Dosage: 5 MG PRN
     Route: 048

REACTIONS (7)
  - Death [Fatal]
  - Culture urine positive [Unknown]
  - Left ventricular dysfunction [Unknown]
  - Asthenia [Unknown]
  - Nausea [Unknown]
  - Abdominal discomfort [Unknown]
  - Anxiety [Unknown]
